FAERS Safety Report 4323835-2 (Version None)
Quarter: 2004Q1

REPORT INFORMATION
  Report Type: 
  Country: None (occurrence: None)
  Receive Date: 20040319
  Receipt Date: 20040309
  Transmission Date: 20041129
  Serious: Yes (Hospitalization)
  Sender: FDA-Public Use
  Company Number: WAES0308ZAF00011

PATIENT
  Age: 67 Year
  Sex: Male

DRUGS (8)
  1. COZAAR [Suspect]
     Indication: CARDIAC FAILURE
     Dosage: PO
     Route: 048
     Dates: start: 20021030
  2. AMIODARONE HYDROCHLORIDE [Concomitant]
  3. ASPIRIN CALCIUM [Concomitant]
  4. ATENOLOL [Concomitant]
  5. ATORVASTATIN CALCIUM [Concomitant]
  6. FUROSEMIDE [Concomitant]
  7. HYDROCHLOROTHIAZIDE [Concomitant]
  8. SPIRONOLACTONE [Concomitant]

REACTIONS (3)
  - DRY MOUTH [None]
  - HYPERGLYCAEMIA [None]
  - THIRST [None]
